FAERS Safety Report 10289412 (Version 2)
Quarter: 2014Q3

REPORT INFORMATION
  Report Type: Spontaneous
  Country: NL (occurrence: NL)
  Receive Date: 20140710
  Receipt Date: 20140710
  Transmission Date: 20150326
  Serious: Yes (Hospitalization)
  Sender: FDA-Public Use
  Company Number: NL-AMGEN INC.-NLDSP2014035418

PATIENT
  Age: 57 Year
  Sex: Female

DRUGS (6)
  1. CHLORTHALIDONE. [Concomitant]
     Active Substance: CHLORTHALIDONE
  2. VALSARTAN. [Concomitant]
     Active Substance: VALSARTAN
  3. VITAMIN B [Concomitant]
     Active Substance: VITAMIN B
  4. XGEVA [Suspect]
     Active Substance: DENOSUMAB
     Indication: PRODUCT USED FOR UNKNOWN INDICATION
     Dosage: 120 MG, Q4WK
     Route: 058
     Dates: start: 20140317
  5. CAPECITABINE [Concomitant]
     Active Substance: CAPECITABINE
  6. CALCI CHEW [Concomitant]

REACTIONS (2)
  - Dyspnoea [Unknown]
  - Pleural effusion [Unknown]
